FAERS Safety Report 5882199-3 (Version None)
Quarter: 2008Q3

REPORT INFORMATION
  Report Type: 
  Country: None (occurrence: None)
  Receive Date: 20080912
  Receipt Date: 20080728
  Transmission Date: 20090109
  Serious: Yes (Life-Threatening)
  Sender: FDA-Public Use
  Company Number: US-ABBOTT-08P-163-0466254-00

PATIENT
  Sex: Male
  Weight: 82.628 kg

DRUGS (2)
  1. HUMIRA [Suspect]
     Indication: PYODERMA GANGRENOSUM
     Route: 058
     Dates: start: 20070701
  2. MORNIFLUMATE [Concomitant]
     Indication: PROSTATOMEGALY
     Route: 048
     Dates: start: 20080501, end: 20080701

REACTIONS (1)
  - MALIGNANT MELANOMA STAGE III [None]
